FAERS Safety Report 8886360 (Version 6)
Quarter: 2013Q3

REPORT INFORMATION
  Report Type: Report from Study
  Country: AU (occurrence: AU)
  Receive Date: 20121105
  Receipt Date: 20130711
  Transmission Date: 20140515
  Serious: Yes (Other)
  Sender: FDA-Public Use
  Company Number: PHHY2012AU099627

PATIENT
  Age: 80 Year
  Sex: Male

DRUGS (2)
  1. ACLASTA [Suspect]
     Dosage: 5 MG, UNK
     Route: 042
     Dates: start: 20101124
  2. ACLASTA [Suspect]
     Dosage: 5 MG, UNK
     Route: 042
     Dates: start: 20111128

REACTIONS (5)
  - Tooth infection [Not Recovered/Not Resolved]
  - Device related infection [Recovered/Resolved]
  - Tooth fracture [Recovered/Resolved]
  - Gingival abscess [Recovering/Resolving]
  - Tooth disorder [Not Recovered/Not Resolved]
